FAERS Safety Report 12989718 (Version 1)
Quarter: 2016Q4

REPORT INFORMATION
  Report Type: Spontaneous
  Country: US (occurrence: US)
  Receive Date: 20161201
  Receipt Date: 20161201
  Transmission Date: 20170207
  Serious: Yes (Other)
  Sender: FDA-Public Use
  Company Number: US-ZYDUS-012786

PATIENT
  Age: 53 Year
  Sex: Male

DRUGS (2)
  1. AZATHIOPRINE. [Suspect]
     Active Substance: AZATHIOPRINE
     Indication: CROHN^S DISEASE
     Route: 065
     Dates: start: 2000
  2. MESALAZINE [Concomitant]
     Active Substance: MESALAMINE
     Indication: CROHN^S DISEASE
     Route: 065
     Dates: start: 2000

REACTIONS (7)
  - Dyspnoea exertional [Unknown]
  - Asthenia [Unknown]
  - Nodular regenerative hyperplasia [Unknown]
  - Varices oesophageal [Unknown]
  - Thrombocytopenia [Unknown]
  - Portal hypertension [Unknown]
  - Anaemia [Unknown]

NARRATIVE: CASE EVENT DATE: 2003
